FAERS Safety Report 9655522 (Version 1)
Quarter: 2013Q4

REPORT INFORMATION
  Report Type: Report from Study
  Country: ES (occurrence: ES)
  Receive Date: 20131029
  Receipt Date: 20131029
  Transmission Date: 20140711
  Serious: Yes (Hospitalization)
  Sender: FDA-Public Use
  Company Number: ES-MERCK-1310ESP011494

PATIENT
  Age: 68 Year
  Sex: Male

DRUGS (3)
  1. PEGINTRON [Suspect]
     Dosage: 50 MICROGRAM, QW
     Route: 065
     Dates: start: 2003
  2. RIBAVIRIN [Suspect]
     Indication: HEPATITIS C
     Dosage: RIBAVIRIN 200 MG TABLETS: 1-0-1 AND 2-0-1 ALTERNATE DAYS
     Route: 048
     Dates: start: 2013
  3. TELAPREVIR [Suspect]
     Indication: HEPATITIS C
     Dosage: 3 TABLETS / 12 HOURS
     Route: 048
     Dates: start: 20130708, end: 20131002

REACTIONS (1)
  - Anaemia [Recovering/Resolving]
